FAERS Safety Report 5669992-7 (Version None)
Quarter: 2008Q1

REPORT INFORMATION
  Report Type: 
  Country: None (occurrence: None)
  Receive Date: 20080317
  Receipt Date: 20080314
  Transmission Date: 20080703
  Serious: Yes (Other)
  Sender: FDA-Public Use
  Company Number: TR-BOEHRINGER INGELHEIM GMBH, GERMANY-2008-BP-03898RO

PATIENT
  Age: 35 Year
  Sex: Female

DRUGS (3)
  1. DICLOFENAC [Suspect]
  2. COTRIMOXAZOLE [Suspect]
  3. DIPYRONE [Suspect]

REACTIONS (1)
  - DRUG ERUPTION [None]
